FAERS Safety Report 10549069 (Version 3)
Quarter: 2014Q4

REPORT INFORMATION
  Report Type: Spontaneous
  Country: US (occurrence: US)
  Receive Date: 20141028
  Receipt Date: 20141118
  Transmission Date: 20150529
  Serious: Yes (Hospitalization, Other)
  Sender: FDA-Public Use
  Company Number: US-BAYER-2014-157896

PATIENT
  Age: 27 Year
  Sex: Female
  Weight: 120.18 kg

DRUGS (1)
  1. MIRENA [Suspect]
     Active Substance: LEVONORGESTREL
     Indication: CONTRACEPTION
     Dosage: 20 MCG/24HR, CONT
     Route: 015
     Dates: start: 20110602, end: 20110812

REACTIONS (13)
  - Anxiety [None]
  - Peritoneal haemorrhage [None]
  - Mental disorder [None]
  - Depression [None]
  - Device issue [None]
  - Abdominal discomfort [None]
  - Procedural pain [None]
  - Uterine perforation [None]
  - Injury [None]
  - Pelvic pain [None]
  - Pelvic discomfort [None]
  - Uterine scar [None]
  - Emotional distress [None]

NARRATIVE: CASE EVENT DATE: 20110602
